FAERS Safety Report 10744517 (Version 2)
Quarter: 2015Q1

REPORT INFORMATION
  Report Type: Spontaneous
  Country: JP (occurrence: None)
  Receive Date: 20150126
  Receipt Date: 20150128
  Transmission Date: 20150721
  Serious: No
  Sender: FDA-Public Use
  Company Number: JP2015JPN008677

PATIENT
  Sex: Male

DRUGS (2)
  1. TIVICAY [Suspect]
     Active Substance: DOLUTEGRAVIR SODIUM
     Indication: HIV INFECTION
     Route: 048
     Dates: start: 20150105
  2. TABLET [Concomitant]

REACTIONS (2)
  - Dizziness [None]
  - Gait disturbance [None]

NARRATIVE: CASE EVENT DATE: 20150105
